FAERS Safety Report 4871396-1 (Version None)
Quarter: 2005Q4

REPORT INFORMATION
  Report Type: 
  Country: None (occurrence: None)
  Receive Date: 20051229
  Receipt Date: 20051216
  Transmission Date: 20060501
  Serious: Yes (Death, Life-Threatening, Hospitalization)
  Sender: FDA-Public Use
  Company Number: 200513047BWH

PATIENT
  Age: 84 Year
  Sex: Male
  Weight: 87.9978 kg

DRUGS (7)
  1. DACARBAZINE [Suspect]
     Indication: METASTATIC MALIGNANT MELANOMA
     Dosage: Q3WK, INTRAVENOUS
     Route: 042
     Dates: start: 20051123
  2. VASOTEC [Concomitant]
  3. ONDANSETRON [Concomitant]
  4. COMPAZINE [Concomitant]
  5. INDAPAMIDE [Concomitant]
  6. METFORMIN [Concomitant]
  7. ENALAPRIL [Concomitant]

REACTIONS (9)
  - ANOREXIA [None]
  - ATRIAL FIBRILLATION [None]
  - DEHYDRATION [None]
  - FATIGUE [None]
  - MALIGNANT NEOPLASM PROGRESSION [None]
  - METASTATIC MALIGNANT MELANOMA [None]
  - PANCYTOPENIA [None]
  - RENAL FAILURE [None]
  - SEPSIS [None]
